FAERS Safety Report 6057770-9 (Version None)
Quarter: 2009Q1

REPORT INFORMATION
  Report Type: 
  Country: None (occurrence: None)
  Receive Date: 20090129
  Receipt Date: 20090120
  Transmission Date: 20090719
  Serious: Yes (Other)
  Sender: FDA-Public Use
  Company Number: PHHY2008GB31444

PATIENT
  Sex: Male

DRUGS (1)
  1. CLOZARIL [Suspect]
     Indication: SCHIZOPHRENIA
     Dosage: UNK
     Route: 048
     Dates: start: 19920811

REACTIONS (5)
  - ANAEMIA [None]
  - HAEMOGLOBIN DECREASED [None]
  - LUNG NEOPLASM MALIGNANT [None]
  - PALLIATIVE CARE [None]
  - TERMINAL STATE [None]
